FAERS Safety Report 17791491 (Version 1)
Quarter: 2020Q2

REPORT INFORMATION
  Report Type: Spontaneous
  Country: US (occurrence: US)
  Receive Date: 20200515
  Receipt Date: 20200515
  Transmission Date: 20200714
  Serious: Yes (Life-Threatening)
  Sender: FDA-Public Use
  Company Number: US-LEADINGPHARMA-US-2020LEALIT00071

PATIENT
  Age: 56 Year
  Sex: Male
  Weight: 70.3 kg

DRUGS (6)
  1. DEXMEDETOMIDINE. [Suspect]
     Active Substance: DEXMEDETOMIDINE
     Indication: AGITATION
     Route: 065
  2. HALOPERIDOL. [Suspect]
     Active Substance: HALOPERIDOL
     Indication: AGITATION
     Route: 042
  3. KETAMINE [Suspect]
     Active Substance: KETAMINE
     Indication: AGITATION
     Route: 030
  4. LORAZEPAM TABLETS USP [Suspect]
     Active Substance: LORAZEPAM
     Indication: AGITATION
     Dosage: 3 HOURS BEFORE KETAMINE ADMINISTRATION
     Route: 042
  5. LORAZEPAM TABLETS USP [Suspect]
     Active Substance: LORAZEPAM
     Indication: SEDATION
     Dosage: AFTER KETAMINE ADMINISTRATION
     Route: 042
  6. HALOPERIDOL. [Suspect]
     Active Substance: HALOPERIDOL
     Indication: SEDATION

REACTIONS (2)
  - Product use in unapproved indication [Unknown]
  - Agitation [Unknown]
